FAERS Safety Report 19776942 (Version 3)
Quarter: 2021Q3

REPORT INFORMATION
  Report Type: Spontaneous
  Country: US (occurrence: US)
  Receive Date: 20210902
  Receipt Date: 20210928
  Transmission Date: 20211014
  Serious: No
  Sender: FDA-Public Use
  Company Number: US-SA-2021SA288137

PATIENT
  Age: 64 Year
  Sex: Male

DRUGS (2)
  1. AUBAGIO [Suspect]
     Active Substance: TERIFLUNOMIDE
     Indication: MULTIPLE SCLEROSIS
     Dosage: 14 MG, QD
     Route: 048
  2. AUBAGIO [Suspect]
     Active Substance: TERIFLUNOMIDE
     Dosage: 14 MG, QD
     Route: 048
     Dates: start: 20210720

REACTIONS (7)
  - Confusional state [Unknown]
  - Balance disorder [Unknown]
  - Cerebral disorder [Unknown]
  - Dizziness [Unknown]
  - Surgery [Unknown]
  - Vertigo [Unknown]
  - Headache [Unknown]

NARRATIVE: CASE EVENT DATE: 2021
